FAERS Safety Report 24855790 (Version 1)
Quarter: 2025Q1

REPORT INFORMATION
  Report Type: Spontaneous
  Country: GB (occurrence: GB)
  Receive Date: 20250117
  Receipt Date: 20250117
  Transmission Date: 20250409
  Serious: Yes (Other)
  Sender: RANBAXY
  Company Number: GB-SUN PHARMACEUTICAL INDUSTRIES LTD-2025RR-489044

PATIENT
  Age: 8 Decade
  Sex: Male

DRUGS (4)
  1. OLANZAPINE [Suspect]
     Active Substance: OLANZAPINE
     Indication: Mania
     Route: 065
  2. DIAZEPAM [Suspect]
     Active Substance: DIAZEPAM
     Indication: Mania
  3. LITHIUM [Suspect]
     Active Substance: LITHIUM
     Indication: Mania
     Route: 065
  4. CLONAZEPAM [Suspect]
     Active Substance: CLONAZEPAM
     Indication: Mania
     Route: 065

REACTIONS (4)
  - Condition aggravated [Unknown]
  - Hallucination [Unknown]
  - Parkinsonism [Unknown]
  - Drug ineffective [Unknown]
